FAERS Safety Report 9188368 (Version 1)
Quarter: 2012Q4

REPORT INFORMATION
  Report Type: 
  Country: US (occurrence: US)
  Receive Date: 20121205
  Receipt Date: 20121205
  Transmission Date: 20130627
  Serious: Yes (Hospitalization)
  Sender: FDA-Public Use
  Company Number: PHEH2012US023735

PATIENT
  Sex: Female
  Weight: 60.77 kg

DRUGS (5)
  1. TASIGNA [Suspect]
     Indication: ACUTE LYMPHOCYTIC LEUKAEMIA
  2. ATENOLOL [Concomitant]
  3. CENTRUM SILVER [Concomitant]
  4. LEVOTHYROXINE [Concomitant]
  5. PRILOSEC [Concomitant]

REACTIONS (6)
  - Burning sensation [Recovering/Resolving]
  - Blister [Recovering/Resolving]
  - Rash generalised [Recovering/Resolving]
  - Rash pruritic [Recovering/Resolving]
  - Rash erythematous [Recovering/Resolving]
  - Skin exfoliation [Recovering/Resolving]
